FAERS Safety Report 16674917 (Version 1)
Quarter: 2019Q3

REPORT INFORMATION
  Report Type: Spontaneous
  Country: US (occurrence: US)
  Receive Date: 20190806
  Receipt Date: 20190806
  Transmission Date: 20191004
  Serious: No
  Sender: FDA-Public Use
  Company Number: US-SA-2019SA207544

PATIENT

DRUGS (1)
  1. ZANTAC 75 [Suspect]
     Active Substance: RANITIDINE HYDROCHLORIDE
     Dosage: UNK UNK, UNK
     Route: 065

REACTIONS (4)
  - Bone pain [Recovering/Resolving]
  - Calcium deficiency [Recovering/Resolving]
  - Magnesium deficiency [Recovering/Resolving]
  - Dyspepsia [Recovering/Resolving]
